FAERS Safety Report 8623566-4 (Version None)
Quarter: 2012Q3

REPORT INFORMATION
  Report Type: 
  Country: None (occurrence: None)
  Receive Date: 20120824
  Receipt Date: 20120824
  Transmission Date: 20120928
  Serious: Yes (Death, Other)
  Sender: FDA-Public Use
  Company Number: None

PATIENT
  Age: 62 Year
  Sex: Female
  Weight: 58.9676 kg

DRUGS (1)
  1. AMOXICILLIN [Suspect]
     Dosage: 1000 MG, BID, PO
     Route: 048
     Dates: start: 20120728, end: 20120810

REACTIONS (7)
  - ANXIETY [None]
  - FATIGUE [None]
  - ABDOMINAL PAIN UPPER [None]
  - BILIARY COLIC [None]
  - DEPRESSION [None]
  - INSOMNIA [None]
  - PANIC ATTACK [None]
